FAERS Safety Report 9687607 (Version 1)
Quarter: 2013Q4

REPORT INFORMATION
  Report Type: Spontaneous
  Country: US (occurrence: None)
  Receive Date: 20131112
  Receipt Date: 20131112
  Transmission Date: 20140711
  Serious: Yes (Death, Hospitalization)
  Sender: FDA-Public Use
  Company Number: 2012P1023293

PATIENT
  Age: 79 Year
  Sex: Male
  Weight: 64.86 kg

DRUGS (2)
  1. DIGOXIN [Suspect]
     Indication: CARDIAC FAILURE CONGESTIVE
     Route: 048
     Dates: start: 20110525, end: 20110809
  2. PLACEBO [Suspect]
     Indication: CARDIAC FAILURE CONGESTIVE
     Route: 048
     Dates: start: 20090413, end: 20110809

REACTIONS (10)
  - Cardiac failure congestive [None]
  - Condition aggravated [None]
  - Renal failure acute [None]
  - Hyperkalaemia [None]
  - Toxicity to various agents [None]
  - Chronic obstructive pulmonary disease [None]
  - Pneumonia [None]
  - Acute respiratory failure [None]
  - Pulmonary oedema [None]
  - Pulmonary congestion [None]
